FAERS Safety Report 7141229-1 (Version None)
Quarter: 2010Q4

REPORT INFORMATION
  Report Type: 
  Country: None (occurrence: None)
  Receive Date: 20101122
  Receipt Date: 20101105
  Transmission Date: 20110411
  Serious: Yes (Hospitalization, Other)
  Sender: FDA-Public Use
  Company Number: 1000016260

PATIENT
  Age: 17 Year
  Sex: Female

DRUGS (3)
  1. MEMANTINE HCL [Suspect]
     Indication: HYPOXIC-ISCHAEMIC ENCEPHALOPATHY
     Dosage: 5 MG (5 MG, 1 IN 1 D)'
  2. METOPROLOL TARTRATE [Concomitant]
  3. CAPTOPRIL [Concomitant]

REACTIONS (2)
  - OFF LABEL USE [None]
  - VENTRICULAR FIBRILLATION [None]
